FAERS Safety Report 7747590-9 (Version None)
Quarter: 2011Q3

REPORT INFORMATION
  Report Type: 
  Country: None (occurrence: None)
  Receive Date: 20110913
  Receipt Date: 20110906
  Transmission Date: 20111222
  Serious: Yes (Death)
  Sender: FDA-Public Use
  Company Number: US-ELI_LILLY_AND_COMPANY-US201108004352

PATIENT
  Age: 78 Year
  Sex: Male
  Weight: 77.098 kg

DRUGS (8)
  1. VITAMIN B-12 [Concomitant]
     Dosage: 1000 UG, UNK
     Route: 030
     Dates: start: 20110513
  2. DEXAMETHASONE [Concomitant]
  3. BENADRYL [Concomitant]
     Dosage: 12.5/5ML
  4. REGLAN [Concomitant]
     Dosage: 10 MG, UNK
  5. CORTICOSTEROIDS [Concomitant]
     Dosage: 4 MG, BID
     Route: 048
     Dates: start: 20110513
  6. ASPIRIN [Concomitant]
     Dosage: LOW DOSE
  7. ALIMTA [Suspect]
     Indication: NON-SMALL CELL LUNG CANCER
     Dosage: 1000 MG, EVERY 3WEEKS
     Route: 042
     Dates: start: 20110519
  8. FOLIC ACID [Concomitant]
     Dosage: 1 MG, QD
     Route: 048
     Dates: start: 20110513

REACTIONS (1)
  - PULMONARY EMBOLISM [None]
